FAERS Safety Report 6182444-3 (Version None)
Quarter: 2009Q2

REPORT INFORMATION
  Report Type: 
  Country: None (occurrence: None)
  Receive Date: 20090507
  Receipt Date: 20090423
  Transmission Date: 20091009
  Serious: Yes (Other)
  Sender: FDA-Public Use
  Company Number: GB-ROCHE-624698

PATIENT
  Sex: Male
  Weight: 85.8 kg

DRUGS (6)
  1. XELODA [Suspect]
     Indication: GASTRIC CANCER
     Dosage: REPORTED AS ECX
     Route: 048
     Dates: start: 20090218, end: 20090311
  2. CISPLATIN [Interacting]
     Indication: GASTRIC CANCER
     Dosage: REPORTED AS ECX
     Route: 042
     Dates: start: 20090218
  3. EPIRUBICIN [Interacting]
     Indication: GASTRIC CANCER
     Dosage: REPORTED AS ECX
     Route: 042
     Dates: start: 20090218
  4. OLANZAPINE [Interacting]
     Dosage: REPORTED AS ^PSYCHIATRIC DRUG^.
     Route: 048
  5. PERPHENAZINE [Interacting]
     Dosage: REPORTED AS  PERPHANAZINE - ALSO REPORTED AS ^PSYCHIATRIC DRUG^.
     Route: 048
  6. CARBAMAZEPINE [Interacting]
     Dosage: REPORTED AS ^PSYCHIATRIC DRUG^. REPORTED AS ^NEUROTROL^
     Route: 048

REACTIONS (2)
  - DRUG INTERACTION [None]
  - HALLUCINATION, VISUAL [None]
